FAERS Safety Report 15668679 (Version 1)
Quarter: 2018Q4

REPORT INFORMATION
  Report Type: Report from Study
  Country: GB (occurrence: GB)
  Receive Date: 20181129
  Receipt Date: 20181129
  Transmission Date: 20190205
  Serious: Yes (Hospitalization)
  Sender: FDA-Public Use
  Company Number: GB-IPSEN BIOPHARMACEUTICALS, INC.-2018-18025

PATIENT
  Age: 72 Year
  Sex: Male

DRUGS (1)
  1. SOMATULINE AUTOGEL 120MG [Suspect]
     Active Substance: LANREOTIDE ACETATE
     Indication: PRODUCT USED FOR UNKNOWN INDICATION
     Dosage: 120 MILLIGRAM
     Route: 058
     Dates: start: 20180905

REACTIONS (8)
  - Diarrhoea [Recovered/Resolved]
  - Alopecia [Unknown]
  - Hot flush [Unknown]
  - Rash pruritic [Unknown]
  - Lower respiratory tract infection [Unknown]
  - Oedema peripheral [Unknown]
  - Trichorrhexis [Unknown]
  - Therapeutic product ineffective [Unknown]

NARRATIVE: CASE EVENT DATE: 201809
